FAERS Safety Report 7010175-6 (Version None)
Quarter: 2010Q3

REPORT INFORMATION
  Report Type: 
  Country: None (occurrence: None)
  Receive Date: 20100923
  Receipt Date: 20100914
  Transmission Date: 20110219
  Serious: Yes (Other)
  Sender: FDA-Public Use
  Company Number: US-PFIZER INC-2010116346

PATIENT
  Sex: Male

DRUGS (11)
  1. ZOLOFT [Suspect]
     Indication: DEPRESSION
     Dosage: 100 MG, 1X/DAY
     Route: 048
  2. VISTARIL [Suspect]
     Indication: ANXIETY
     Dosage: 30 MG, 1X/DAY
     Route: 048
  3. VISTARIL [Suspect]
     Indication: DEPRESSION
  4. GABAPENTIN [Suspect]
     Indication: MUSCLE RELAXANT THERAPY
     Dosage: 200 MG, 3X/DAY
     Route: 048
  5. SEROQUEL [Suspect]
     Indication: INSOMNIA
     Dosage: 600 MG, 1X/DAY
     Route: 048
  6. PROPRANOLOL [Concomitant]
     Indication: HYPERTENSION
     Dosage: 40 MG, 2X/DAY
     Route: 048
  7. PROPRANOLOL [Concomitant]
     Indication: MITRAL VALVE PROLAPSE
  8. HYDROCODONE [Concomitant]
     Indication: SURGERY
     Dosage: UNK
  9. HYDROCODONE [Concomitant]
     Indication: KNEE OPERATION
  10. BUPROPION [Concomitant]
     Indication: KNEE OPERATION
     Dosage: 30 MG, UNK
     Route: 048
  11. BUPROPION [Concomitant]
     Indication: SURGERY

REACTIONS (5)
  - DIZZINESS [None]
  - HEADACHE [None]
  - MIGRAINE [None]
  - NECK PAIN [None]
  - VISION BLURRED [None]
